FAERS Safety Report 15192201 (Version 1)
Quarter: 2018Q3

REPORT INFORMATION
  Report Type: Spontaneous
  Country: JP (occurrence: JP)
  Receive Date: 20180724
  Receipt Date: 20180724
  Transmission Date: 20181010
  Serious: Yes (Other)
  Sender: FDA-Public Use
  Company Number: JP-SHIRE-JP201826460AA

PATIENT
  Age: 65 Year
  Weight: 70 kg

DRUGS (6)
  1. FEIBA NF [Suspect]
     Active Substance: ANTI-INHIBITOR COAGULANT COMPLEX
     Indication: ACQUIRED HAEMOPHILIA
     Dosage: 4000 IU, 2X/DAY:BID
     Route: 065
     Dates: start: 20160517, end: 20160517
  2. FEIBA NF [Suspect]
     Active Substance: ANTI-INHIBITOR COAGULANT COMPLEX
     Dosage: 4000 IU, 3X/DAY:TID
     Route: 065
     Dates: start: 20160518, end: 20160518
  3. FEIBA NF [Suspect]
     Active Substance: ANTI-INHIBITOR COAGULANT COMPLEX
     Dosage: 4000 IU, 2X/DAY:BID
     Route: 065
     Dates: start: 20160519, end: 20160519
  4. FEIBA NF [Suspect]
     Active Substance: ANTI-INHIBITOR COAGULANT COMPLEX
     Indication: MUSCLE HAEMORRHAGE
     Dosage: 3000 IU, UNKNOWN
     Route: 065
     Dates: start: 20160516, end: 20160516
  5. FEIBA NF [Suspect]
     Active Substance: ANTI-INHIBITOR COAGULANT COMPLEX
     Dosage: UNK
     Route: 065
  6. FEIBA NF [Suspect]
     Active Substance: ANTI-INHIBITOR COAGULANT COMPLEX
     Dosage: 4000 IU, 1X/DAY:QD
     Route: 065
     Dates: start: 20160520

REACTIONS (1)
  - Shock [Unknown]

NARRATIVE: CASE EVENT DATE: 2016
